FAERS Safety Report 10616579 (Version 1)
Quarter: 2014Q4

REPORT INFORMATION
  Report Type: Spontaneous
  Country: JP (occurrence: JP)
  Receive Date: 20141201
  Receipt Date: 20141201
  Transmission Date: 20150529
  Serious: Yes (Other)
  Sender: FDA-Public Use
  Company Number: JP-BAYER-2014-172930

PATIENT
  Sex: Female

DRUGS (1)
  1. YAZ [Suspect]
     Active Substance: DROSPIRENONE\ETHINYL ESTRADIOL
     Indication: MENORRHAGIA
     Dosage: UNK
     Route: 048
     Dates: start: 2013

REACTIONS (3)
  - Platelet count decreased [None]
  - Product use issue [None]
  - Vertigo [None]

NARRATIVE: CASE EVENT DATE: 20141121
